FAERS Safety Report 10243468 (Version 2)
Quarter: 2014Q4

REPORT INFORMATION
  Report Type: Other
  Country: IT (occurrence: IT)
  Receive Date: 20140618
  Receipt Date: 20141012
  Transmission Date: 20150528
  Serious: Yes (Hospitalization)
  Sender: FDA-Public Use
  Company Number: IT-MYLANLABS-2014S1013677

PATIENT

DRUGS (4)
  1. CONTRAMAL [Suspect]
     Active Substance: TRAMADOL HYDROCHLORIDE
     Indication: CERVICOBRACHIAL SYNDROME
     Dosage: 20 GTT,TOTAL
     Route: 048
     Dates: start: 20131217, end: 20131217
  2. PARACETAMOL [Suspect]
     Active Substance: ACETAMINOPHEN
     Indication: CERVICOBRACHIAL SYNDROME
     Dosage: 1 DF,TOTAL
     Route: 048
     Dates: start: 20131217, end: 20131217
  3. KETOPROFEN. [Suspect]
     Active Substance: KETOPROFEN
     Indication: CERVICOBRACHIAL SYNDROME
     Dosage: 1 DF,TOTAL
     Route: 048
     Dates: start: 20131217, end: 20131217
  4. EUTIROX [Concomitant]
     Active Substance: LEVOTHYROXINE SODIUM
     Indication: PRODUCT USED FOR UNKNOWN INDICATION
     Dosage: 10 ?G,UNK

REACTIONS (4)
  - Vomiting [Recovered/Resolved]
  - Abdominal pain upper [Recovered/Resolved]
  - Nausea [Recovered/Resolved]
  - Presyncope [Recovered/Resolved]

NARRATIVE: CASE EVENT DATE: 20131217
